FAERS Safety Report 13592593 (Version 1)
Quarter: 2017Q2

REPORT INFORMATION
  Report Type: Report from Study
  Country: None (occurrence: BR)
  Receive Date: 20170530
  Receipt Date: 20170530
  Transmission Date: 20170830
  Serious: Yes (Hospitalization, Other)
  Sender: FDA-Public Use
  Company Number: BR-ABBVIE-17K-020-1989706-00

PATIENT
  Sex: Female
  Weight: 65 kg

DRUGS (2)
  1. HUMIRA [Suspect]
     Active Substance: ADALIMUMAB
     Indication: ANKYLOSING SPONDYLITIS
     Route: 058
     Dates: start: 20140404
  2. NORELGESTROMINE [Concomitant]
     Indication: PRODUCT USED FOR UNKNOWN INDICATION
     Dosage: 1 PATCH
     Route: 062
     Dates: start: 2016

REACTIONS (8)
  - Granuloma [Unknown]
  - Sepsis [Unknown]
  - Injection site erythema [Recovered/Resolved]
  - Nasal ulcer [Unknown]
  - Furuncle [Not Recovered/Not Resolved]
  - Injection site pruritus [Recovered/Resolved]
  - Sinusitis [Recovering/Resolving]
  - Injection site swelling [Recovered/Resolved]

NARRATIVE: CASE EVENT DATE: 2015
